FAERS Safety Report 9787676 (Version 2)
Quarter: 2014Q1

REPORT INFORMATION
  Report Type: Spontaneous
  Country: US (occurrence: None)
  Receive Date: 20131226
  Receipt Date: 20140103
  Transmission Date: 20141002
  Serious: Yes (Other)
  Sender: FDA-Public Use
  Company Number: 2013-US-004799

PATIENT
  Age: 38 Year
  Sex: Female

DRUGS (2)
  1. XYREM (SODIUM OXYBATE) ORAL SOLUTION, 500 MG/ML [Suspect]
     Indication: NARCOLEPSY
     Route: 048
     Dates: start: 201305, end: 2013
  2. XYREM (SODIUM OXYBATE) ORAL SOLUTION, 500 MG/ML [Suspect]
     Indication: CATAPLEXY
     Route: 048
     Dates: start: 201305, end: 2013

REACTIONS (5)
  - Nervous system disorder [None]
  - Malaise [None]
  - Memory impairment [None]
  - Underdose [None]
  - Procedural pain [None]
